FAERS Safety Report 4953371-1 (Version None)
Quarter: 2006Q1

REPORT INFORMATION
  Report Type: 
  Country: None (occurrence: None)
  Receive Date: 20060127
  Receipt Date: 20050317
  Transmission Date: 20060701
  Serious: Yes (Death, Hospitalization, Other)
  Sender: FDA-Public Use
  Company Number: 05-03-0428

PATIENT
  Age: 16 Year
  Sex: Male
  Weight: 156.491 kg

DRUGS (3)
  1. CLOZAPINE [Suspect]
     Indication: AFFECTIVE DISORDER
     Dosage: 200MG QHS, ORAL
     Route: 048
     Dates: start: 20050225, end: 20050301
  2. CLOZAPINE [Suspect]
     Indication: CONDUCT DISORDER
     Dosage: 200MG QHS, ORAL
     Route: 048
     Dates: start: 20050225, end: 20050301
  3. CLOZAPINE [Suspect]
     Indication: SCHIZOPHRENIA
     Dosage: 200MG QHS, ORAL
     Route: 048
     Dates: start: 20050225, end: 20050301

REACTIONS (1)
  - NEUROLEPTIC MALIGNANT SYNDROME [None]
